FAERS Safety Report 8201503-4 (Version None)
Quarter: 2012Q1

REPORT INFORMATION
  Report Type: 
  Country: None (occurrence: None)
  Receive Date: 20120308
  Receipt Date: 20120302
  Transmission Date: 20120608
  Serious: Yes (Other)
  Sender: FDA-Public Use
  Company Number: 1186667

PATIENT
  Age: 64 Year
  Sex: Male
  Weight: 69 kg

DRUGS (6)
  1. VANCOMYCIN HYDROCHLORIDE [Suspect]
     Indication: PNEUMONIA STAPHYLOCOCCAL
     Dosage: SEE IMAGE
     Route: 041
     Dates: start: 20110928, end: 20110928
  2. VANCOMYCIN HYDROCHLORIDE [Suspect]
     Indication: PNEUMONIA STAPHYLOCOCCAL
     Dosage: SEE IMAGE
     Route: 041
     Dates: start: 20110929, end: 20111003
  3. VANCOMYCIN HYDROCHLORIDE [Suspect]
     Indication: PNEUMONIA STAPHYLOCOCCAL
     Dosage: SEE IMAGE
     Route: 041
     Dates: start: 20111004, end: 20111004
  4. (MENATETRENONE) [Concomitant]
  5. WARFARIN SODIUM [Concomitant]
  6. FUROSEMIDE [Concomitant]

REACTIONS (3)
  - SPINAL CORD INFARCTION [None]
  - INTERNATIONAL NORMALISED RATIO INCREASED [None]
  - CARDIO-RESPIRATORY ARREST [None]
